FAERS Safety Report 11874270 (Version 2)
Quarter: 2016Q1

REPORT INFORMATION
  Report Type: Report from Study
  Country: JP (occurrence: JP)
  Receive Date: 20151229
  Receipt Date: 20160101
  Transmission Date: 20160526
  Serious: Yes (Other)
  Sender: FDA-Public Use
  Company Number: JP-AMGEN-JPNCT2015139082

PATIENT
  Age: 64 Year
  Sex: Male
  Weight: 60 kg

DRUGS (9)
  1. GASTER [Concomitant]
     Active Substance: FAMOTIDINE
     Indication: GASTRITIS PROPHYLAXIS
     Dosage: 20 MG, BID
     Route: 042
     Dates: start: 20151128, end: 20151204
  2. ACETAMINOPHEN. [Concomitant]
     Active Substance: ACETAMINOPHEN
     Indication: PYREXIA
     Dosage: 400 MG, PRN
     Route: 054
     Dates: start: 20151127
  3. BFLUID [Concomitant]
     Active Substance: AMINO ACIDS\DEXTROSE\ELECTROLYTES NOS\VITAMINS
     Indication: FLUID REPLACEMENT
     Dosage: 500 ML, BID
     Route: 042
     Dates: start: 20151127, end: 20151204
  4. POTACOL R [Concomitant]
     Indication: FLUID REPLACEMENT
     Dosage: 500 ML, QD
     Route: 042
     Dates: start: 20151130, end: 20151130
  5. ALEVAIRE [Concomitant]
     Indication: ASTHMA
     Dosage: 1 ML, TID
     Route: 055
     Dates: start: 20151127
  6. UNASYN S [Concomitant]
     Active Substance: AMPICILLIN SODIUM\SULBACTAM SODIUM
     Indication: PNEUMONIA
     Dosage: 3 G, TID
     Route: 042
     Dates: start: 20151127, end: 20151216
  7. PHYSIO 140 [Concomitant]
     Indication: FLUID REPLACEMENT
     Dosage: 500 ML, QD
     Route: 042
     Dates: start: 20151127, end: 20151203
  8. FILGRASTIM [Suspect]
     Active Substance: FILGRASTIM
     Indication: SPINAL CORD INJURY CERVICAL
     Dosage: 400 MCG/M2, UNK
     Route: 041
     Dates: start: 20151128, end: 20151130
  9. VENETLIN [Concomitant]
     Active Substance: ALBUTEROL SULFATE
     Indication: ASTHMA
     Dosage: 0.5 ML, TID
     Route: 055
     Dates: start: 20151127

REACTIONS (1)
  - Altered state of consciousness [Recovering/Resolving]

NARRATIVE: CASE EVENT DATE: 20151130
